FAERS Safety Report 9723393 (Version 2)
Quarter: 2013Q4

REPORT INFORMATION
  Report Type: Report from Study
  Country: US (occurrence: US)
  Receive Date: 20131202
  Receipt Date: 20131230
  Transmission Date: 20140711
  Serious: Yes (Hospitalization)
  Sender: FDA-Public Use
  Company Number: US-BRISTOL-MYERS SQUIBB COMPANY-19864834

PATIENT
  Age: 40 Year
  Sex: Male

DRUGS (7)
  1. ARIPIPRAZOLE [Suspect]
     Indication: BIPOLAR DISORDER
     Route: 048
     Dates: start: 20131031, end: 20131117
  2. ATIVAN [Concomitant]
     Dates: start: 20131018
  3. AMBIEN [Concomitant]
     Dates: start: 20131018
  4. METAMUCIL [Concomitant]
     Dates: start: 20131106
  5. MOTRIN [Concomitant]
     Dates: start: 20131111
  6. RISPERIDONE [Concomitant]
     Dates: start: 20131118
  7. SEROQUEL [Concomitant]
     Dates: start: 20131118

REACTIONS (1)
  - Mania [Recovered/Resolved]
